FAERS Safety Report 11217291 (Version 2)
Quarter: 2015Q3

REPORT INFORMATION
  Report Type: Spontaneous
  Country: JP (occurrence: JP)
  Receive Date: 20150625
  Receipt Date: 20150702
  Transmission Date: 20151125
  Serious: No
  Sender: FDA-Public Use
  Company Number: JP-009507513-1506JPN010316

PATIENT
  Age: 79 Year
  Sex: Female
  Weight: 57 kg

DRUGS (18)
  1. MOSAPRIDE CITRATE [Concomitant]
     Active Substance: MOSAPRIDE CITRATE
     Indication: GASTRITIS
     Dosage: 5 MG, TID
     Route: 048
  2. DEPAS [Suspect]
     Active Substance: ETIZOLAM
     Dosage: DALY DOSE UNKNOWN
     Route: 048
     Dates: start: 20150603
  3. MUCOSTA [Concomitant]
     Active Substance: REBAMIPIDE
     Indication: GASTRITIS
     Dosage: 100 MG, BID (TWICE A DAY)
     Route: 048
     Dates: start: 20150513
  4. LOSARTAN POTASSIUM. [Concomitant]
     Active Substance: LOSARTAN POTASSIUM
     Indication: HYPERTENSION
     Dosage: 100 MG, QD
     Route: 048
     Dates: start: 20150513
  5. NEXIUM [Concomitant]
     Active Substance: ESOMEPRAZOLE MAGNESIUM
     Indication: GASTRITIS PROPHYLAXIS
     Dosage: 20 MG, QD (ONCE A DAY)
     Route: 048
     Dates: start: 20150513
  6. VITAMIN E NICOTINATE [Concomitant]
     Indication: HYPERLIPIDAEMIA
     Dosage: 200 MG, BID (TWICE A DAY)
     Route: 048
     Dates: start: 20150513
  7. DEPAS [Suspect]
     Active Substance: ETIZOLAM
     Dosage: DAILY DOSE UNKNOWN
     Route: 048
     Dates: end: 20150527
  8. AMLODIPINE BESYLATE. [Concomitant]
     Active Substance: AMLODIPINE BESYLATE
     Indication: HYPERTENSION
     Dosage: 5 MG, QD (ONCE A DAY)
     Route: 048
     Dates: start: 20150513
  9. MECOBALAMIN [Concomitant]
     Active Substance: METHYLCOBALAMIN
     Indication: NEUROPATHY PERIPHERAL
     Dosage: 0.5 MICROGRAM, TID
     Route: 048
  10. IBUPROFEN. [Concomitant]
     Active Substance: IBUPROFEN
     Indication: ARTHRALGIA
     Dosage: 100 MG, BID
     Route: 048
     Dates: start: 20150513
  11. BELSOMRA [Suspect]
     Active Substance: SUVOREXANT
     Indication: INSOMNIA
     Dosage: 15 MG, QD (ONCE A DAY)
     Route: 048
     Dates: start: 20150528, end: 20150602
  12. XYZAL [Concomitant]
     Active Substance: LEVOCETIRIZINE DIHYDROCHLORIDE
     Dosage: 5 MG, QD (ONCE A DAY)
     Route: 048
     Dates: start: 20150513
  13. CELECOX [Concomitant]
     Active Substance: CELECOXIB
     Indication: PAIN
     Dosage: 100 MG, BID (TWICE DAILY)
     Route: 048
     Dates: start: 20150513
  14. SIMVASTATIN. [Concomitant]
     Active Substance: SIMVASTATIN
     Indication: HYPERLIPIDAEMIA
     Dosage: 5 MG, QD (ONCE A DAY)
     Route: 048
     Dates: start: 20150513
  15. LIMAPROST ALFADEX [Concomitant]
     Active Substance: LIMAPROST
     Indication: ANGIOPATHY
     Dosage: 5 MICROGRAM, BID
     Route: 048
     Dates: start: 20150513
  16. DESPA KOWA [Concomitant]
     Indication: STOMATITIS
     Dosage: UNK UNK, PRN
     Route: 061
     Dates: start: 20150520
  17. BASSAMIN [Concomitant]
     Active Substance: ASPIRIN\DIHYDROXYALUMINUM AMINOACETATE\MAGNESIUM CARBONATE
     Indication: THROMBOSIS PROPHYLAXIS
     Dosage: 81 MG, QD (ONCE A DAY)
     Route: 048
     Dates: start: 20150513
  18. IBUPROFEN. [Concomitant]
     Active Substance: IBUPROFEN
     Indication: ANTIINFLAMMATORY THERAPY

REACTIONS (6)
  - Dyspnoea [Unknown]
  - Atonic seizures [Recovered/Resolved]
  - Dizziness [Unknown]
  - Nightmare [Recovered/Resolved]
  - Insomnia [Recovered/Resolved]
  - Cardiac disorder [Unknown]

NARRATIVE: CASE EVENT DATE: 20150528
